FAERS Safety Report 7829214-5 (Version None)
Quarter: 2011Q4

REPORT INFORMATION
  Report Type: 
  Country: None (occurrence: None)
  Receive Date: 20111020
  Receipt Date: 20111018
  Transmission Date: 20120403
  Serious: Yes (Death)
  Sender: FDA-Public Use
  Company Number: PHHY2011US50986

PATIENT
  Sex: Female
  Weight: 19 kg

DRUGS (2)
  1. EXJADE [Suspect]
     Indication: HAEMOGLOBINOPATHY
     Dosage: 500 MG, QD
     Route: 048
     Dates: start: 20090701
  2. EXJADE [Suspect]
     Route: 048
     Dates: end: 20110620

REACTIONS (1)
  - COMPLICATIONS OF BONE MARROW TRANSPLANT [None]
